FAERS Safety Report 20520864 (Version 1)
Quarter: 2022Q1

REPORT INFORMATION
  Report Type: Report from Study
  Country: BR (occurrence: BR)
  Receive Date: 20220225
  Receipt Date: 20220225
  Transmission Date: 20220423
  Serious: Yes (Other)
  Sender: FDA-Public Use
  Company Number: BR-UCBSA-2022009864

PATIENT
  Age: 41 Year
  Sex: Female
  Weight: 101 kg

DRUGS (9)
  1. CERTOLIZUMAB PEGOL [Suspect]
     Active Substance: CERTOLIZUMAB PEGOL
     Indication: Rheumatoid arthritis
     Dosage: 200 MILLIGRAM, EV 15 DAYS
     Route: 058
     Dates: start: 202105, end: 202112
  2. ENALAPRIL [Concomitant]
     Active Substance: ENALAPRIL
     Indication: Hypertension
     Dosage: 20 MILLIGRAM, UNK
     Route: 048
  3. AMLODIPINA ACC [Concomitant]
     Indication: Hypertension
     Dosage: 25 MILLIGRAM, UNK
     Route: 048
  4. NPH INSULIN [Concomitant]
     Active Substance: INSULIN BEEF
     Indication: Diabetes mellitus
     Route: 048
  5. GLIFAGE [Concomitant]
     Active Substance: METFORMIN HYDROCHLORIDE
     Indication: Diabetes mellitus
     Dosage: 500 MILLIGRAM, UNK
     Route: 048
  6. GLICLAZIDE [Concomitant]
     Active Substance: GLICLAZIDE
     Indication: Diabetes mellitus
     Dosage: 60 MILLIGRAM, UNK
     Route: 048
  7. SPIRIVA [Concomitant]
     Active Substance: TIOTROPIUM BROMIDE MONOHYDRATE
     Indication: Asthma
     Route: 016
  8. VENLAFAXINE [Concomitant]
     Active Substance: VENLAFAXINE HYDROCHLORIDE
     Indication: Anxiety
     Dosage: 100 MILLIGRAM, UNK
     Route: 016
  9. DIOSMIN [Concomitant]
     Active Substance: DIOSMIN
     Indication: Product used for unknown indication

REACTIONS (2)
  - COVID-19 [Recovered/Resolved]
  - Influenza [Recovered/Resolved]

NARRATIVE: CASE EVENT DATE: 20211201
